FAERS Safety Report 5755502-2 (Version None)
Quarter: 2008Q2

REPORT INFORMATION
  Report Type: 
  Country: None (occurrence: None)
  Receive Date: 20080602
  Receipt Date: 20080522
  Transmission Date: 20081010
  Serious: Yes (Death, Life-Threatening, Disabling)
  Sender: FDA-Public Use
  Company Number: JP-JNJFOC-20071203776

PATIENT
  Sex: Male

DRUGS (15)
  1. FINIBAX [Suspect]
     Route: 041
  2. FINIBAX [Suspect]
     Indication: PNEUMONIA
     Route: 041
  3. BIOFERMIN R [Concomitant]
     Indication: PROPHYLAXIS
     Route: 065
  4. TAKEPRON [Concomitant]
     Indication: PROPHYLAXIS
     Route: 065
  5. BLOPRESS [Concomitant]
     Route: 065
  6. NORVASC [Concomitant]
     Route: 065
  7. ARTIST [Concomitant]
     Route: 065
  8. HANP [Concomitant]
     Route: 065
  9. ELASPOL [Concomitant]
     Route: 065
  10. ONOACT [Concomitant]
     Route: 065
  11. NITROGLYCERIN [Concomitant]
     Route: 065
  12. PERDIPINE [Concomitant]
     Route: 065
  13. ALTAT [Concomitant]
     Indication: PROPHYLAXIS
     Route: 065
  14. INOVAN [Concomitant]
     Route: 065
  15. DOBUTREX [Concomitant]
     Route: 065

REACTIONS (5)
  - ARRHYTHMIA [None]
  - BLOOD CREATININE INCREASED [None]
  - BLOOD UREA INCREASED [None]
  - DRUG INEFFECTIVE [None]
  - WHITE BLOOD CELL COUNT INCREASED [None]
